FAERS Safety Report 25665927 (Version 3)
Quarter: 2025Q4

REPORT INFORMATION
  Report Type: Report from Study
  Country: US (occurrence: US)
  Receive Date: 20250811
  Receipt Date: 20251006
  Transmission Date: 20260118
  Serious: No
  Sender: BIOVITRUM
  Company Number: US-BIOVITRUM-2025-US-003310

PATIENT
  Age: 50 Year
  Sex: Female

DRUGS (2)
  1. DOPTELET [Suspect]
     Active Substance: AVATROMBOPAG MALEATE
     Indication: Immune thrombocytopenia
     Dosage: DAILY (1 TABLET ONCE DAILY)
     Route: 048
     Dates: start: 20250214
  2. DOPTELET [Suspect]
     Active Substance: AVATROMBOPAG MALEATE
     Dosage: EVERY OTHER DAY
     Route: 048

REACTIONS (13)
  - Diarrhoea [Unknown]
  - Brain fog [Not Recovered/Not Resolved]
  - Alanine aminotransferase increased [Unknown]
  - Dizziness [Unknown]
  - Intentional dose omission [Unknown]
  - Product packaging difficult to open [Unknown]
  - Platelet count abnormal [Recovering/Resolving]
  - Dental caries [Unknown]
  - PCO2 decreased [Unknown]
  - White blood cell count decreased [Unknown]
  - Red blood cell count increased [Unknown]
  - Drug ineffective [Unknown]
  - Adverse drug reaction [Unknown]

NARRATIVE: CASE EVENT DATE: 20250501
